FAERS Safety Report 9671278 (Version 1)
Quarter: 2013Q4

REPORT INFORMATION
  Report Type: Spontaneous
  Country: US (occurrence: None)
  Receive Date: 20131105
  Receipt Date: 20131105
  Transmission Date: 20140711
  Serious: Yes (Life-Threatening, Disabling)
  Sender: FDA-Public Use
  Company Number: None

PATIENT
  Age: 30 Year
  Sex: Female
  Weight: 65.77 kg

DRUGS (1)
  1. MIRVASO 0.33% GALDERMA [Suspect]
     Indication: OFF LABEL USE
     Dosage: APPLY ONCE DAILY IN THE A.M. , APPLIED TO A SURFACE, USUALLY THE SKIN
     Dates: start: 20131102, end: 20131102

REACTIONS (8)
  - Dry mouth [None]
  - Fatigue [None]
  - Dyspnoea [None]
  - Aptyalism [None]
  - Choking [None]
  - Dizziness [None]
  - Dysarthria [None]
  - Lethargy [None]
